FAERS Safety Report 10013364 (Version 2)
Quarter: 2014Q2

REPORT INFORMATION
  Report Type: Spontaneous
  Country: IT (occurrence: FR)
  Receive Date: 20140314
  Receipt Date: 20140507
  Transmission Date: 20141212
  Serious: Yes (Disabling)
  Sender: FDA-Public Use
  Company Number: FR-FRI-1000060580

PATIENT
  Age: 68 Year
  Sex: Female

DRUGS (8)
  1. NEBIVOLOL [Suspect]
     Indication: HYPERTENSION
     Dosage: 5 MG
     Route: 048
     Dates: start: 200911
  2. LEVOTHYROX [Suspect]
     Indication: THYROIDECTOMY
     Dosage: 100 MCG
     Route: 048
  3. LANSOPRAZOLE [Suspect]
     Dosage: 30 MG
     Route: 048
     Dates: start: 2010
  4. COAPROVEL [Suspect]
     Indication: HYPERTENSION
     Dosage: 300 MG/12.5 MG
     Dates: start: 200902
  5. ATORVASTATIN [Suspect]
     Indication: PERIPHERAL ARTERIAL OCCLUSIVE DISEASE
     Dosage: 20 MG
     Route: 048
     Dates: start: 2008
  6. LORAZEPAM [Suspect]
     Indication: ANXIETY
     Dosage: 1 MG
     Route: 048
     Dates: start: 2011
  7. PLAVIX [Suspect]
     Indication: PERIPHERAL ARTERIAL OCCLUSIVE DISEASE
     Dosage: 75 MG
     Route: 048
     Dates: start: 2004
  8. METFORMIN [Suspect]
     Indication: TYPE 2 DIABETES MELLITUS
     Dosage: 1500 MG
     Route: 048

REACTIONS (1)
  - Osteonecrosis [Recovered/Resolved with Sequelae]
